FAERS Safety Report 24399450 (Version 1)
Quarter: 2024Q4

REPORT INFORMATION
  Report Type: Spontaneous
  Country: US (occurrence: US)
  Receive Date: 20241005
  Receipt Date: 20241005
  Transmission Date: 20250114
  Serious: Yes (Hospitalization)
  Sender: AMGEN
  Company Number: US-AMGEN-USASP2024193938

PATIENT
  Age: 70 Year
  Sex: Female

DRUGS (1)
  1. PREDNISONE [Suspect]
     Active Substance: PREDNISONE
     Indication: Vestibular neuronitis
     Dosage: UNK
     Route: 065

REACTIONS (9)
  - Deep vein thrombosis [Unknown]
  - Pulmonary embolism [Unknown]
  - Embolism [Unknown]
  - Blood pressure decreased [Unknown]
  - Presyncope [Unknown]
  - Drug effective for unapproved indication [Unknown]
  - Electrocardiogram ST-T segment abnormal [Recovering/Resolving]
  - Obstructive sleep apnoea syndrome [Unknown]
  - Off label use [Unknown]
